FAERS Safety Report 10944270 (Version 1)
Quarter: 2015Q1

REPORT INFORMATION
  Report Type: Spontaneous
  Country: US (occurrence: US)
  Receive Date: 20150323
  Receipt Date: 20150323
  Transmission Date: 20150721
  Serious: No
  Sender: FDA-Public Use
  Company Number: US-BIOGENIDEC-2015BI019179

PATIENT
  Age: 49 Year
  Sex: Female

DRUGS (2)
  1. AVONEX [Suspect]
     Active Substance: INTERFERON BETA-1A
     Indication: MULTIPLE SCLEROSIS
     Route: 030
     Dates: start: 20080411
  2. AVONEX [Suspect]
     Active Substance: INTERFERON BETA-1A
     Indication: MULTIPLE SCLEROSIS
     Route: 030
     Dates: start: 20000401, end: 20060828

REACTIONS (8)
  - Ear infection [Not Recovered/Not Resolved]
  - Fatigue [Unknown]
  - Deafness [Unknown]
  - Ear haemorrhage [Not Recovered/Not Resolved]
  - Ear congestion [Not Recovered/Not Resolved]
  - Multiple sclerosis relapse [Unknown]
  - Ear pain [Not Recovered/Not Resolved]
  - Loss of control of legs [Recovered/Resolved]

NARRATIVE: CASE EVENT DATE: 20150104
